FAERS Safety Report 15168896 (Version 1)
Quarter: 2018Q3

REPORT INFORMATION
  Report Type: Spontaneous
  Country: DE (occurrence: DE)
  Receive Date: 20180720
  Receipt Date: 20180720
  Transmission Date: 20181010
  Serious: Yes (Other)
  Sender: FDA-Public Use
  Company Number: DE-CONCORDIA PHARMACEUTICALS INC.-E2B_00014116

PATIENT
  Age: 52 Year
  Sex: Female

DRUGS (3)
  1. PREDNISOLONE  TABLET [Suspect]
     Active Substance: PREDNISOLONE
     Indication: PERICARDIAL EFFUSION
     Dosage: 30 MG DAILY, REDUCED TO 5 MG DAILY
     Route: 048
     Dates: start: 20180603
  2. BISOPROLOL [Concomitant]
     Active Substance: BISOPROLOL
     Indication: HYPERTENSION
  3. VITAMIN D3 [Concomitant]
     Active Substance: CHOLECALCIFEROL
     Dosage: 1000I.E.
     Dates: start: 20180603

REACTIONS (3)
  - Osteoporosis [Not Recovered/Not Resolved]
  - Sleep disorder [Not Recovered/Not Resolved]
  - Urogenital haemorrhage [Recovered/Resolved]

NARRATIVE: CASE EVENT DATE: 201806
